FAERS Safety Report 17500732 (Version 2)
Quarter: 2021Q1

REPORT INFORMATION
  Report Type: Spontaneous
  Country: SE (occurrence: SE)
  Receive Date: 20200305
  Receipt Date: 20210323
  Transmission Date: 20210419
  Serious: Yes (Hospitalization, Disabling)
  Sender: FDA-Public Use
  Company Number: SE-AMGEN-SWESP2020035850

PATIENT
  Age: 58 Year
  Sex: Female

DRUGS (2)
  1. ENBREL [Suspect]
     Active Substance: ETANERCEPT
     Indication: RHEUMATOID ARTHRITIS
     Dosage: 50 MG, WEEKLY
     Route: 058
     Dates: start: 20120629, end: 20120910
  2. ENBREL [Suspect]
     Active Substance: ETANERCEPT
     Indication: ANTI-CYCLIC CITRULLINATED PEPTIDE ANTIBODY POSITIVE
     Dosage: 1 DF, WEEKLY
     Route: 065
     Dates: start: 2016, end: 2016

REACTIONS (5)
  - Muscular weakness [Not Recovered/Not Resolved]
  - White matter lesion [Not Recovered/Not Resolved]
  - Magnetic resonance imaging spinal abnormal [Not Recovered/Not Resolved]
  - Anal incontinence [Not Recovered/Not Resolved]
  - Urinary incontinence [Not Recovered/Not Resolved]

NARRATIVE: CASE EVENT DATE: 2013
